FAERS Safety Report 4138213 (Version 3)
Quarter: 2020Q3

REPORT INFORMATION
  Report Type: Report from Study
  Country: US (occurrence: US)
  Receive Date: 20040430
  Receipt Date: 20050119
  Transmission Date: 20201104
  Serious: Yes (Other)
  Sender: FDA-Public Use
  Company Number: US-JNJFOC-20040404007

PATIENT
  Age: 52 Year
  Sex: Female
  Weight: 58.5 kg

DRUGS (2)
  1. CISAPRIDE [Suspect]
     Active Substance: CISAPRIDE
     Route: 049
     Dates: start: 20020508, end: 20040331
  2. CISAPRIDE [Suspect]
     Active Substance: CISAPRIDE
     Route: 049
     Dates: start: 20020508, end: 20040331

REACTIONS (1)
  - Electrocardiogram QT prolonged [Recovered/Resolved]

NARRATIVE: CASE EVENT DATE: 20040318
